FAERS Safety Report 8194343-6 (Version None)
Quarter: 2012Q1

REPORT INFORMATION
  Report Type: 
  Country: None (occurrence: None)
  Receive Date: 20120308
  Receipt Date: 20120302
  Transmission Date: 20120608
  Serious: No
  Sender: FDA-Public Use
  Company Number: US-PFIZER INC-2012057020

PATIENT
  Sex: Female
  Weight: 56.689 kg

DRUGS (1)
  1. LEVOXYL [Suspect]
     Indication: THYROID OPERATION
     Dosage: 100 MCG ONCE IN A DAY FOR SIX DAYS A WEEK AND 150MCG ONCE IN A DAY ON SEVENTH DAY OF WEEK
     Dates: start: 20000302

REACTIONS (1)
  - HYPERSENSITIVITY [None]
